FAERS Safety Report 7238189-1 (Version None)
Quarter: 2011Q1

REPORT INFORMATION
  Report Type: 
  Country: None (occurrence: None)
  Receive Date: 20110121
  Receipt Date: 20110119
  Transmission Date: 20110831
  Serious: No
  Sender: FDA-Public Use
  Company Number: US-PFIZER INC-2011014049

PATIENT
  Age: 59 Year
  Sex: Female
  Weight: 88.435 kg

DRUGS (1)
  1. ADVIL COLD AND SINUS [Suspect]
     Indication: SINUS HEADACHE
     Dosage: 2 CAPLETS, 1X/DAY
     Route: 048
     Dates: start: 20110119, end: 20110119

REACTIONS (3)
  - ANXIETY [None]
  - ABDOMINAL DISCOMFORT [None]
  - DYSGEUSIA [None]
